FAERS Safety Report 6999299-7 (Version None)
Quarter: 2010Q3

REPORT INFORMATION
  Report Type: 
  Country: None (occurrence: None)
  Receive Date: 20100920
  Receipt Date: 20100910
  Transmission Date: 20110219
  Serious: Yes (Other)
  Sender: FDA-Public Use
  Company Number: KR-SANOFI-AVENTIS-2010SA055060

PATIENT
  Age: 24 Year
  Sex: Male

DRUGS (4)
  1. ETHAMBUTOL HYDROCHLORIDE [Suspect]
     Indication: TUBERCULOSIS
  2. RIFAMPICIN [Suspect]
     Indication: TUBERCULOSIS
  3. ISONIAZID [Suspect]
     Indication: TUBERCULOSIS
  4. PYRAZINAMIDE [Suspect]
     Indication: TUBERCULOSIS

REACTIONS (1)
  - HEREDITARY OPTIC ATROPHY [None]
